FAERS Safety Report 8987447 (Version 2)
Quarter: 2013Q1

REPORT INFORMATION
  Report Type: Spontaneous
  Country: US (occurrence: US)
  Receive Date: 20121227
  Receipt Date: 20130219
  Transmission Date: 20140127
  Serious: No
  Sender: FDA-Public Use
  Company Number: US-PFIZER INC-2012326929

PATIENT
  Sex: Female

DRUGS (4)
  1. PREMARIN [Suspect]
     Indication: VULVOVAGINAL DRYNESS
     Dosage: UNK
     Route: 067
     Dates: start: 20121221
  2. PREMARIN [Suspect]
     Dosage: 0.5 G, EVERY OTHER DAY
  3. PREMARIN [Suspect]
     Dosage: 0.5 G, WEEKLY
  4. VIACTIV SOFT CALCIUM CHEWS [Concomitant]
     Dosage: 500 MG, 2X/DAY
     Route: 048

REACTIONS (1)
  - Vaginal discharge [Not Recovered/Not Resolved]
